FAERS Safety Report 4623122-9 (Version None)
Quarter: 2005Q1

REPORT INFORMATION
  Report Type: 
  Country: None (occurrence: None)
  Receive Date: 20050330
  Receipt Date: 20050321
  Transmission Date: 20050727
  Serious: Yes (Other)
  Sender: FDA-Public Use
  Company Number: US-SANOFI-SYNTHELABO-A03200500773

PATIENT
  Sex: Male

DRUGS (1)
  1. AMBIEN [Suspect]
     Indication: INSOMNIA
     Route: 048
     Dates: start: 20050219, end: 20050219

REACTIONS (7)
  - AMNESIA [None]
  - CARDIAC ARREST [None]
  - CONVULSION [None]
  - DYSKINESIA [None]
  - EMOTIONAL DISTRESS [None]
  - HALLUCINATION, VISUAL [None]
  - SCREAMING [None]
